FAERS Safety Report 4596140-7 (Version None)
Quarter: 2005Q1

REPORT INFORMATION
  Report Type: 
  Country: None (occurrence: None)
  Receive Date: 20050302
  Receipt Date: 20050207
  Transmission Date: 20050727
  Serious: Yes (Other)
  Sender: FDA-Public Use
  Company Number: CA-ROCHE-394924

PATIENT
  Age: 85 Year
  Sex: Male

DRUGS (2)
  1. TAMIFLU [Suspect]
     Indication: PROPHYLAXIS
     Dosage: DOSAGE REGIMEN: QD (EVERY DAY)
     Route: 048
     Dates: start: 20050128, end: 20050215
  2. WARFARIN SODIUM [Concomitant]
     Indication: ATRIAL FIBRILLATION
     Dosage: 2004 - 25 NOV 2004, PT TREATED WITH WARFARIN, OD. 25 NOV 2004 - 03 DEC 2004, STRENGTH OF WARFARIN =+
     Route: 048
     Dates: start: 20040615, end: 20050215

REACTIONS (1)
  - INTERNATIONAL NORMALISED RATIO INCREASED [None]
